FAERS Safety Report 12464594 (Version 1)
Quarter: 2016Q2

REPORT INFORMATION
  Report Type: Not Available
  Country: JP (occurrence: JP)
  Receive Date: 20160614
  Receipt Date: 20160614
  Transmission Date: 20160815
  Serious: Yes (Life-Threatening)
  Sender: FDA-Public Use
  Company Number: JP-AKORN-32494

PATIENT
  Age: 55 Year
  Sex: Male

DRUGS (1)
  1. DILTIAZEM HYDROCHLORIDE NJECTION [Suspect]
     Active Substance: DILTIAZEM HYDROCHLORIDE

REACTIONS (3)
  - Renal tubular necrosis [Recovered/Resolved]
  - Acute kidney injury [None]
  - Overdose [None]
